FAERS Safety Report 20847140 (Version 1)
Quarter: 2022Q2

REPORT INFORMATION
  Report Type: Spontaneous
  Country: US (occurrence: US)
  Receive Date: 20220519
  Receipt Date: 20220519
  Transmission Date: 20220721
  Serious: Yes (Other)
  Sender: FDA-Public Use
  Company Number: US-SA-SAC20220516000736

PATIENT
  Age: 44 Year
  Sex: Female

DRUGS (2)
  1. ZANTAC [Suspect]
     Active Substance: RANITIDINE HYDROCHLORIDE
     Indication: Gastrooesophageal reflux disease
     Dosage: UNK, OTHER
     Dates: start: 199701, end: 199701
  2. ZANTAC [Suspect]
     Active Substance: RANITIDINE HYDROCHLORIDE
     Indication: Gastric ulcer

REACTIONS (6)
  - Uterine cancer [Unknown]
  - Renal cancer stage II [Unknown]
  - Renal surgery [Unknown]
  - Arthritis [Unknown]
  - Degenerative bone disease [Unknown]
  - Injury [Unknown]

NARRATIVE: CASE EVENT DATE: 20020801
